FAERS Safety Report 21553347 (Version 2)
Quarter: 2022Q4

REPORT INFORMATION
  Report Type: Report from Study
  Country: CA (occurrence: CA)
  Receive Date: 20221104
  Receipt Date: 20221124
  Transmission Date: 20230113
  Serious: Yes (Hospitalization, Other)
  Sender: FDA-Public Use
  Company Number: CA-SA-SAC20221101000080

PATIENT
  Age: 48 Year
  Sex: Female

DRUGS (9)
  1. ALEMTUZUMAB [Suspect]
     Active Substance: ALEMTUZUMAB
     Indication: Relapsing-remitting multiple sclerosis
     Dosage: 12 MG, QD
     Route: 041
     Dates: start: 20210913, end: 20210915
  2. VITAMIN C [Concomitant]
     Active Substance: ASCORBIC ACID
     Dosage: UNK
     Route: 065
  3. CHOLECALCIFEROL [Concomitant]
     Active Substance: CHOLECALCIFEROL
     Dosage: UNK
     Route: 065
  4. .ALPHA.-TOCOPHEROL [Concomitant]
     Active Substance: .ALPHA.-TOCOPHEROL
     Dosage: UNK
     Route: 065
  5. CO ENZYME Q10 [UBIDECARENONE] [Concomitant]
     Dosage: UNK
     Route: 065
  6. BIFIDOBACTERIUM ANIMALIS LACTIS [Concomitant]
     Active Substance: BIFIDOBACTERIUM ANIMALIS LACTIS
     Dosage: UNK
     Route: 065
  7. LEVOTHYROXINE [Concomitant]
     Active Substance: LEVOTHYROXINE
     Dosage: UNK
     Route: 065
  8. VITAMIN B COMPLEX [CYANOCOBALAMIN] [Concomitant]
     Dosage: UNK
     Route: 065
  9. IMMUNE GLOBULIN NOS [Concomitant]
     Active Substance: IMMUNE GLOBULIN NOS
     Dosage: UNK UNK, Q8W
     Route: 042

REACTIONS (4)
  - Thrombotic thrombocytopenic purpura [Not Recovered/Not Resolved]
  - Heavy menstrual bleeding [Not Recovered/Not Resolved]
  - Contusion [Not Recovered/Not Resolved]
  - Platelet count abnormal [Not Recovered/Not Resolved]

NARRATIVE: CASE EVENT DATE: 20221024
